FAERS Safety Report 6536608-7 (Version None)
Quarter: 2010Q1

REPORT INFORMATION
  Report Type: 
  Country: None (occurrence: None)
  Receive Date: 20100113
  Receipt Date: 20100105
  Transmission Date: 20100710
  Serious: Yes (Hospitalization, Other)
  Sender: FDA-Public Use
  Company Number: US-PFIZER INC-2010002170

PATIENT
  Sex: Male
  Weight: 79.365 kg

DRUGS (6)
  1. CHANTIX [Suspect]
     Indication: SMOKING CESSATION THERAPY
     Dosage: UNK
     Dates: start: 20090101, end: 20100101
  2. BENADRYL [Suspect]
  3. ALCOHOL [Concomitant]
  4. FLEXERIL [Concomitant]
  5. LORAZEPAM [Concomitant]
  6. TRAZODONE [Concomitant]

REACTIONS (4)
  - ALCOHOL DETOXIFICATION [None]
  - DEPRESSION [None]
  - RASH [None]
  - STUPOR [None]
